FAERS Safety Report 17767219 (Version 5)
Quarter: 2020Q4

REPORT INFORMATION
  Report Type: Report from Study
  Country: US (occurrence: US)
  Receive Date: 20200511
  Receipt Date: 20201210
  Transmission Date: 20210113
  Serious: Yes (Death, Hospitalization)
  Sender: FDA-Public Use
  Company Number: US-PUMA BIOTECHNOLOGY, LTD.-2020US002530

PATIENT

DRUGS (5)
  1. CAPECITABINE. [Concomitant]
     Active Substance: CAPECITABINE
     Indication: PRODUCT USED FOR UNKNOWN INDICATION
     Dosage: 500 MG, BID (2 WEEKS ON AND 1 WEEK OFF)
     Route: 048
     Dates: start: 20200414
  2. NERLYNX [Suspect]
     Active Substance: NERATINIB
     Dosage: 240 MG (6 TABLETS), DAILY
     Route: 048
     Dates: start: 202005
  3. NERLYNX [Suspect]
     Active Substance: NERATINIB
     Indication: BREAST CANCER FEMALE
     Dosage: 120 MG (3 TABLETS), DAILY
     Route: 048
     Dates: start: 20200414, end: 202004
  4. NERLYNX [Suspect]
     Active Substance: NERATINIB
     Dosage: 200 MG (5 TABLETS), DAILY
     Route: 048
     Dates: start: 202004, end: 202004
  5. NERLYNX [Suspect]
     Active Substance: NERATINIB
     Indication: METASTASES TO BONE
     Dosage: 160 MG (4 TABLETS), DAILY
     Route: 048
     Dates: start: 202004, end: 202004

REACTIONS (6)
  - Peripheral swelling [Not Recovered/Not Resolved]
  - Death [Fatal]
  - Drug titration [Unknown]
  - Hospitalisation [Unknown]
  - Weight fluctuation [Unknown]
  - Balance disorder [Unknown]

NARRATIVE: CASE EVENT DATE: 2020
